FAERS Safety Report 6187167-2 (Version None)
Quarter: 2009Q2

REPORT INFORMATION
  Report Type: 
  Country: None (occurrence: None)
  Receive Date: 20090512
  Receipt Date: 20090504
  Transmission Date: 20091009
  Serious: Yes (Other)
  Sender: FDA-Public Use
  Company Number: FR-TEVA-192042ISR

PATIENT
  Age: 54 Year
  Sex: Female

DRUGS (2)
  1. BISOPROLOL [Suspect]
     Indication: HEART RATE DECREASED
     Route: 048
     Dates: start: 20080201
  2. PROMEGESTONE [Concomitant]

REACTIONS (4)
  - MENTAL DISORDER [None]
  - OBSESSIVE THOUGHTS [None]
  - OBSESSIVE-COMPULSIVE DISORDER [None]
  - TACHYPHRENIA [None]
